FAERS Safety Report 6765504-5 (Version None)
Quarter: 2010Q2

REPORT INFORMATION
  Report Type: 
  Country: None (occurrence: None)
  Receive Date: 20100611
  Receipt Date: 20100604
  Transmission Date: 20101027
  Serious: Yes (Other)
  Sender: FDA-Public Use
  Company Number: NZ-JNJFOC-20100600502

PATIENT
  Age: 44 Year
  Sex: Female
  Weight: 76 kg

DRUGS (2)
  1. RISPERDAL CONSTA [Suspect]
     Indication: TREATMENT NONCOMPLIANCE
     Dosage: TOTAL OF 5 DOSES
     Route: 030
  2. ZOPICLONE [Concomitant]
     Indication: INSOMNIA
     Dosage: MAXIMUM ONCE AT NIGHT
     Route: 048

REACTIONS (2)
  - PSYCHOTIC DISORDER [None]
  - SUICIDAL IDEATION [None]
